FAERS Safety Report 13485730 (Version 2)
Quarter: 2017Q2

REPORT INFORMATION
  Report Type: Spontaneous
  Country: US (occurrence: US)
  Receive Date: 20170426
  Receipt Date: 20170614
  Transmission Date: 20170830
  Serious: No
  Sender: FDA-Public Use
  Company Number: US-009507513-1704USA007380

PATIENT

DRUGS (1)
  1. ASMANEX [Suspect]
     Active Substance: MOMETASONE FUROATE
     Dosage: 110 MCG/ ONE INHALATION ONCE A DAY
     Route: 055

REACTIONS (3)
  - Product quality issue [Unknown]
  - Candida infection [Unknown]
  - Drug dose omission [Unknown]
